FAERS Safety Report 14176966 (Version 1)
Quarter: 2017Q4

REPORT INFORMATION
  Report Type: Spontaneous
  Country: US (occurrence: None)
  Receive Date: 20171110
  Receipt Date: 20171110
  Transmission Date: 20180321
  Serious: No
  Sender: FDA-Public Use
  Company Number: None

PATIENT
  Age: 25 Year
  Sex: Female
  Weight: 60.33 kg

DRUGS (7)
  1. LISINOPRIL. [Concomitant]
     Active Substance: LISINOPRIL
  2. METRONIDAZOLE. [Concomitant]
     Active Substance: METRONIDAZOLE
  3. CHANTIX [Concomitant]
     Active Substance: VARENICLINE TARTRATE
  4. DOXYCYCLINE. [Concomitant]
     Active Substance: DOXYCYCLINE
  5. CRANBERRY. [Concomitant]
     Active Substance: CRANBERRY
  6. NATURE MADE MULTI VITAMIN FOR HER PLUS OMEGA 3 [Concomitant]
  7. MIRENA [Suspect]
     Active Substance: LEVONORGESTREL

REACTIONS (2)
  - Pelvic inflammatory disease [None]
  - Pelvic pain [None]

NARRATIVE: CASE EVENT DATE: 20171103
